FAERS Safety Report 6433129-7 (Version None)
Quarter: 2009Q4

REPORT INFORMATION
  Report Type: 
  Country: None (occurrence: None)
  Receive Date: 20091109
  Receipt Date: 20091030
  Transmission Date: 20100525
  Serious: Yes (Other)
  Sender: FDA-Public Use
  Company Number: GB-TEVA-214196ISR

PATIENT

DRUGS (2)
  1. ETOPOSIDE [Suspect]
     Indication: METASTASES TO MENINGES
  2. TOPOTECAN [Suspect]
     Indication: METASTASES TO MENINGES

REACTIONS (1)
  - DEAFNESS [None]
